FAERS Safety Report 8976238 (Version 2)
Quarter: 2013Q1

REPORT INFORMATION
  Report Type: Spontaneous
  Country: US (occurrence: US)
  Receive Date: 20121220
  Receipt Date: 20130121
  Transmission Date: 20140127
  Serious: No
  Sender: FDA-Public Use
  Company Number: US-009507513-1212USA007771

PATIENT
  Age: 57 Year
  Sex: Female

DRUGS (14)
  1. JANUVIA [Suspect]
     Indication: TYPE 2 DIABETES MELLITUS
     Dosage: 100 MG, QD
     Route: 048
  2. SINGULAIR [Suspect]
     Route: 048
  3. DICYCLOMINE HYDROCHLORIDE [Concomitant]
  4. GABAPENTIN [Concomitant]
  5. CARISOPRODOL [Concomitant]
  6. ALPRAZOLAM [Concomitant]
  7. CLINDAMYCIN [Concomitant]
  8. OMEPRAZOLE [Concomitant]
  9. PROMETHAZINE [Concomitant]
  10. CRESTOR [Concomitant]
  11. CYMBALTA [Concomitant]
  12. GLIPIZIDE (+) METFORMIN HYDROCHLORIDE [Concomitant]
  13. PROAIR HFA [Concomitant]
  14. LISINOPRIL [Concomitant]

REACTIONS (4)
  - Diarrhoea [Not Recovered/Not Resolved]
  - Vomiting [Not Recovered/Not Resolved]
  - Drug dose omission [Unknown]
  - Product quality issue [Unknown]
